FAERS Safety Report 7503721-7 (Version None)
Quarter: 2011Q2

REPORT INFORMATION
  Report Type: 
  Country: None (occurrence: None)
  Receive Date: 20110518
  Receipt Date: 20110503
  Transmission Date: 20111010
  Serious: No
  Sender: FDA-Public Use
  Company Number: DE-1185857

PATIENT
  Age: 39 Year
  Sex: Female
  Weight: 92 kg

DRUGS (1)
  1. ISOPTO MAX OPHTHALMIC SUSPENSION (ISOPTO-MAX) [Suspect]
     Indication: STRABISMUS
     Dosage: 1 GTT QID OD OPHTHALMIC
     Route: 047
     Dates: start: 20110315, end: 20110317

REACTIONS (1)
  - CIRCULATORY COLLAPSE [None]
